FAERS Safety Report 14125406 (Version 1)
Quarter: 2017Q4

REPORT INFORMATION
  Report Type: Spontaneous
  Country: FR (occurrence: FR)
  Receive Date: 20171025
  Receipt Date: 20171025
  Transmission Date: 20180321
  Serious: Yes (Hospitalization)
  Sender: FDA-Public Use
  Company Number: FR-SA-2017SA149048

PATIENT
  Age: 88 Year
  Sex: Male
  Weight: 50 kg

DRUGS (8)
  1. KARDEGIC [Suspect]
     Active Substance: ASPIRIN DL-LYSINE
     Route: 048
     Dates: start: 20161021
  2. CRESTOR [Concomitant]
     Active Substance: ROSUVASTATIN CALCIUM
     Indication: HYPERCHOLESTEROLAEMIA
     Route: 048
     Dates: start: 20161025
  3. PLAVIX [Suspect]
     Active Substance: CLOPIDOGREL BISULFATE
     Route: 048
     Dates: start: 20161021, end: 20170527
  4. LASILIX [Concomitant]
     Active Substance: FUROSEMIDE
     Route: 048
     Dates: start: 20161025
  5. TRANSIPEG [Concomitant]
     Active Substance: POLYETHYLENE GLYCOL 3350
     Indication: LAXATIVE SUPPORTIVE CARE
     Route: 048
     Dates: start: 20170521, end: 20170527
  6. RAMIPRIL. [Concomitant]
     Active Substance: RAMIPRIL
     Indication: HYPERTENSION
     Route: 048
     Dates: start: 20161025
  7. DOLIPRANE [Concomitant]
     Active Substance: ACETAMINOPHEN
     Indication: ANALGESIC THERAPY
     Route: 048
     Dates: start: 20161117, end: 20170527
  8. DOLIPRANE [Concomitant]
     Active Substance: ACETAMINOPHEN
     Indication: ANTIPYRESIS
     Route: 048
     Dates: start: 20161117, end: 20170527

REACTIONS (6)
  - Gastrointestinal haemorrhage [Recovered/Resolved]
  - Anaemia [Recovering/Resolving]
  - Melaena [Recovered/Resolved]
  - General physical health deterioration [Unknown]
  - Pleural effusion [Recovering/Resolving]
  - Weight decreased [Unknown]

NARRATIVE: CASE EVENT DATE: 20170520
